FAERS Safety Report 11707765 (Version 1)
Quarter: 2015Q4

REPORT INFORMATION
  Report Type: Spontaneous
  Country: US (occurrence: US)
  Receive Date: 20151104
  Receipt Date: 20151104
  Transmission Date: 20160304
  Serious: No
  Sender: FDA-Public Use
  Company Number: US-ELI_LILLY_AND_COMPANY-US201101007116

PATIENT
  Age: 67 Year
  Sex: Female

DRUGS (1)
  1. FORTEO [Suspect]
     Active Substance: TERIPARATIDE
     Indication: OSTEOPOROSIS
     Dosage: 20 UG, DAILY (1/D)
     Dates: start: 20110118, end: 20110128

REACTIONS (13)
  - Abdominal pain upper [Unknown]
  - Mobility decreased [Unknown]
  - Breast pain [Unknown]
  - Fatigue [Unknown]
  - Headache [Unknown]
  - Neck pain [Unknown]
  - Diarrhoea [Unknown]
  - Chest pain [Unknown]
  - Drug dose omission [Recovered/Resolved]
  - Musculoskeletal stiffness [Unknown]
  - Dizziness [Unknown]
  - Injection site pain [Not Recovered/Not Resolved]
  - Drug dose omission [Unknown]

NARRATIVE: CASE EVENT DATE: 20110118
